FAERS Safety Report 6550086-3 (Version None)
Quarter: 2010Q1

REPORT INFORMATION
  Report Type: 
  Country: None (occurrence: None)
  Receive Date: 20100119
  Receipt Date: 20100107
  Transmission Date: 20100710
  Serious: Yes (Other)
  Sender: FDA-Public Use
  Company Number: AE-2009-309

PATIENT
  Age: 40 Year
  Sex: Female

DRUGS (10)
  1. HYDROCHLOROQUINE [Suspect]
     Indication: RHEUMATOID ARTHRITIS
     Dosage: 200MG, QD, ORAL
     Route: 048
  2. DICLOFENAC [Suspect]
     Dosage: 75MG, QD
  3. CLOPIDOGREL [Suspect]
     Dosage: QD
  4. DICLOFENAC [Suspect]
     Dosage: 75MG *BID
  5. DIHYDROCODEINE BITARATE [Concomitant]
     Dosage: QD, ORALLY
     Route: 048
  6. ENBREL [Suspect]
     Indication: PSORIATIC ARTHROPATHY
     Dosage: 25MG, 2/WK
     Dates: start: 20041210
  7. FOLIC ACID [Suspect]
     Dosage: QD
  8. METHOTREXATE [Suspect]
     Indication: RHEUMATOID ARTHRITIS
     Dosage: 25MG, QD
  9. *ORAL CONTRACEPTIVES [Suspect]
  10. VOLTAROL OPHTHA (DICLOFENAC SODIUM) [Suspect]

REACTIONS (1)
  - GALACTORRHOEA [None]
